FAERS Safety Report 25164427 (Version 3)
Quarter: 2025Q3

REPORT INFORMATION
  Report Type: Report from Study
  Country: US (occurrence: US)
  Receive Date: 20250405
  Receipt Date: 20250809
  Transmission Date: 20251020
  Serious: Yes (Hospitalization)
  Sender: ALEXION PHARMACEUTICALS
  Company Number: US-AstraZeneca-CH-00839002A

PATIENT
  Age: 78 Year

DRUGS (2)
  1. SOLIRIS [Suspect]
     Active Substance: ECULIZUMAB
     Indication: Myasthenia gravis
     Route: 065
  2. BENADRYL [Concomitant]
     Active Substance: DIPHENHYDRAMINE HYDROCHLORIDE
     Route: 065

REACTIONS (5)
  - Fall [Not Recovered/Not Resolved]
  - Dyspnoea exertional [Unknown]
  - Emotional distress [Not Recovered/Not Resolved]
  - Influenza [Unknown]
  - Insomnia [Unknown]

NARRATIVE: CASE EVENT DATE: 20250330
